FAERS Safety Report 18026105 (Version 13)
Quarter: 2021Q2

REPORT INFORMATION
  Report Type: Report from Study
  Country: TR (occurrence: TR)
  Receive Date: 20200715
  Receipt Date: 20210504
  Transmission Date: 20210717
  Serious: Yes (Death, Hospitalization)
  Sender: FDA-Public Use
  Company Number: TR-EISAI MEDICAL RESEARCH-EC-2020-077384

PATIENT
  Age: 59 Year
  Sex: Female
  Weight: 70 kg

DRUGS (3)
  1. LENVATINIB [Suspect]
     Active Substance: LENVATINIB
     Indication: ENDOMETRIAL CANCER RECURRENT
     Route: 048
     Dates: start: 20200625, end: 20200708
  2. LENVATINIB [Suspect]
     Active Substance: LENVATINIB
     Route: 048
     Dates: start: 20200717, end: 20200826
  3. PEMBROLIZUMAB. [Suspect]
     Active Substance: PEMBROLIZUMAB
     Indication: ENDOMETRIAL CANCER RECURRENT
     Route: 041
     Dates: start: 20200625, end: 20200625

REACTIONS (1)
  - Hepatitis [Recovered/Resolved]

NARRATIVE: CASE EVENT DATE: 20200709
